FAERS Safety Report 7406603-4 (Version None)
Quarter: 2011Q2

REPORT INFORMATION
  Report Type: 
  Country: None (occurrence: None)
  Receive Date: 20110406
  Receipt Date: 20110406
  Transmission Date: 20111010
  Serious: Yes (Hospitalization)
  Sender: FDA-Public Use
  Company Number: None

PATIENT
  Age: 76 Year
  Sex: Male

DRUGS (2)
  1. LIPITOR [Suspect]
     Dosage: 80MG DAILY ORAL
     Route: 048
     Dates: start: 20110301
  2. LOTREL [Suspect]
     Indication: HYPERTENSION
     Dosage: BENZAPRIL DAILY ORAL
     Route: 048
     Dates: start: 20110301

REACTIONS (2)
  - ABDOMINAL PAIN [None]
  - ABDOMINAL DISTENSION [None]
